FAERS Safety Report 20818192 (Version 1)
Quarter: 2022Q2

REPORT INFORMATION
  Report Type: Spontaneous
  Country: US (occurrence: US)
  Receive Date: 20220512
  Receipt Date: 20220512
  Transmission Date: 20220721
  Serious: Yes (Other)
  Sender: FDA-Public Use
  Company Number: US-Accord-263181

PATIENT
  Age: 64 Year
  Sex: Female
  Weight: 56.7 kg

DRUGS (3)
  1. ANASTROZOLE [Suspect]
     Active Substance: ANASTROZOLE
     Indication: Product used for unknown indication
     Dosage: ONE A DAY
     Route: 048
     Dates: start: 202112, end: 20220403
  2. PALBOCICLIB [Suspect]
     Active Substance: PALBOCICLIB
     Indication: Product used for unknown indication
     Dates: start: 20211210
  3. ZOMETA [Concomitant]
     Active Substance: ZOLEDRONIC ACID
     Indication: Product used for unknown indication
     Dates: start: 202112

REACTIONS (5)
  - Neutropenia [Not Recovered/Not Resolved]
  - Abdominal distension [Recovered/Resolved]
  - Dyspepsia [Recovered/Resolved]
  - White blood cell count decreased [Not Recovered/Not Resolved]
  - Stomatitis [Not Recovered/Not Resolved]

NARRATIVE: CASE EVENT DATE: 20211201
